FAERS Safety Report 9507022 (Version 1)
Quarter: 2013Q3

REPORT INFORMATION
  Report Type: Spontaneous
  Country: JP (occurrence: None)
  Receive Date: 20130904
  Receipt Date: 20130904
  Transmission Date: 20140515
  Serious: Yes (Other)
  Sender: FDA-Public Use
  Company Number: B0919356A

PATIENT
  Sex: 0

DRUGS (6)
  1. MELPHALAN [Suspect]
     Indication: PLASMA CELL MYELOMA
     Route: 042
  2. BORTEZOMIB [Suspect]
     Indication: PLASMA CELL MYELOMA
     Route: 042
  3. DEXAMETHASONE [Suspect]
     Indication: PLASMA CELL MYELOMA
     Route: 048
  4. LENOGRASTIM [Concomitant]
  5. CYCLOPHOSPHAMIDE [Concomitant]
  6. FILGRASTIM [Concomitant]

REACTIONS (1)
  - Staphylococcal bacteraemia [None]
